FAERS Safety Report 10452194 (Version 1)
Quarter: 2014Q3

REPORT INFORMATION
  Report Type: Spontaneous
  Country: US (occurrence: None)
  Receive Date: 20140912
  Receipt Date: 20140912
  Transmission Date: 20150326
  Serious: No
  Sender: FDA-Public Use
  Company Number: None

PATIENT
  Age: 65 Year
  Sex: Female

DRUGS (2)
  1. ROPIVACINE HYDROCHLORIDE [Suspect]
     Active Substance: ROPIVACAINE HYDROCHLORIDE
     Dosage: INJECTABLE, PERIPHERAL NERVE CAT, 100ML VIAL
  2. OFIRMEV [Suspect]
     Active Substance: ACETAMINOPHEN
     Dosage: INJECTABLE, IV
     Route: 042

REACTIONS (3)
  - Generalised tonic-clonic seizure [None]
  - Wrong drug administered [None]
  - Incorrect route of drug administration [None]
